FAERS Safety Report 4995415-7 (Version None)
Quarter: 2006Q2

REPORT INFORMATION
  Report Type: 
  Country: None (occurrence: None)
  Receive Date: 20060503
  Receipt Date: 20051207
  Transmission Date: 20061013
  Serious: Yes (Death)
  Sender: FDA-Public Use
  Company Number: MEDI-0003915

PATIENT
  Age: 74 Year
  Sex: Male

DRUGS (14)
  1. ETHYOL [Suspect]
     Indication: CHEMOTHERAPY
     Dosage: SUBCUTANEOUS
     Route: 058
     Dates: start: 20051129, end: 20051205
  2. ETHYOL [Suspect]
     Indication: RADIOTHERAPY
     Dosage: SUBCUTANEOUS
     Route: 058
     Dates: start: 20051129, end: 20051205
  3. PLATINOL [Concomitant]
  4. PREDNISONE TAB [Concomitant]
  5. AMBIEN [Concomitant]
  6. VICODIN [Concomitant]
  7. BENADRYL [Concomitant]
  8. TAGAMET [Concomitant]
  9. CLARITIN [Concomitant]
  10. MEDROL DOSE PACK (METHYLPREDNISOLONE) [Concomitant]
  11. ATIVAN [Concomitant]
  12. ALOXI [Concomitant]
  13. DECADRON SRC [Concomitant]
  14. COMPAZINE [Concomitant]

REACTIONS (6)
  - DISEASE PROGRESSION [None]
  - DRUG ERUPTION [None]
  - METASTASIS [None]
  - PLEURITIC PAIN [None]
  - RASH MACULO-PAPULAR [None]
  - RECURRENT CANCER [None]
